FAERS Safety Report 6914656-2 (Version None)
Quarter: 2010Q3

REPORT INFORMATION
  Report Type: 
  Country: None (occurrence: None)
  Receive Date: 20100809
  Receipt Date: 20100729
  Transmission Date: 20110219
  Serious: Yes (Hospitalization, Other)
  Sender: FDA-Public Use
  Company Number: US-MERCK-1007USA03938

PATIENT
  Age: 81 Year
  Sex: Female

DRUGS (4)
  1. PRINIVIL [Suspect]
     Route: 048
  2. METFORMIN HCL [Suspect]
     Route: 065
  3. SYNTHROID [Suspect]
     Route: 065
  4. PLAVIX [Suspect]
     Route: 065

REACTIONS (3)
  - CEREBRAL HAEMORRHAGE [None]
  - DYSARTHRIA [None]
  - VIITH NERVE PARALYSIS [None]
